FAERS Safety Report 4500634-X (Version None)
Quarter: 2004Q4

REPORT INFORMATION
  Report Type: 
  Country: None (occurrence: None)
  Receive Date: 20041115
  Receipt Date: 20040820
  Transmission Date: 20050328
  Serious: Yes (Hospitalization)
  Sender: FDA-Public Use
  Company Number: BR-NOVOPROD-238828

PATIENT
  Sex: Female

DRUGS (6)
  1. NOVOLIN N [Suspect]
     Indication: DIABETES MELLITUS
  2. METFORMIN [Concomitant]
     Dosage: 850 MG, QD
  3. HYDROCHLOROTHIAZIDE [Concomitant]
  4. ADALAT [Concomitant]
  5. COZAAR [Concomitant]
  6. ACETYLSALICYLIC ACID [Concomitant]
     Dosage: 100 MG, QD

REACTIONS (3)
  - PRURITUS [None]
  - SYNCOPE [None]
  - URTICARIA [None]
